FAERS Safety Report 14285209 (Version 17)
Quarter: 2018Q2

REPORT INFORMATION
  Report Type: Report from Study
  Country: DE (occurrence: DE)
  Receive Date: 20171214
  Receipt Date: 20180627
  Transmission Date: 20180711
  Serious: Yes (Hospitalization)
  Sender: FDA-Public Use
  Company Number: DE-CONCORDIA PHARMACEUTICALS INC.-E2B_00008807

PATIENT
  Age: 58 Year
  Sex: Female
  Weight: 55 kg

DRUGS (18)
  1. PREDNISOLONE. [Suspect]
     Active Substance: PREDNISOLONE
     Dosage: 20 MG, QD
     Route: 048
     Dates: start: 20170213
  2. PEGFILGRASTIM [Suspect]
     Active Substance: PEGFILGRASTIM
     Indication: B-CELL LYMPHOMA
     Route: 058
     Dates: start: 20171015, end: 20171015
  3. CYCLOPHOSPHAMIDE. [Suspect]
     Active Substance: CYCLOPHOSPHAMIDE
     Indication: B-CELL LYMPHOMA
     Dosage: CUMULATIVE DOSE TO FIRST REACTION 1400 MG
     Route: 042
     Dates: start: 20171012, end: 20171012
  4. ACETYLSALICYLIC ACID [Concomitant]
     Active Substance: ASPIRIN
     Indication: PROPHYLAXIS
     Dosage: CUMULATIVE DOSE TO FIRST REACTION WAS 1500 MG
     Route: 048
     Dates: start: 20171010
  5. TAMSULOSIN [Concomitant]
     Active Substance: TAMSULOSIN
     Indication: BENIGN PROSTATIC HYPERPLASIA
     Dosage: CUMULATIVE DOSE TO FIRST REACTION 60 MG
     Route: 048
     Dates: start: 20171010
  6. RITUXIMAB. [Suspect]
     Active Substance: RITUXIMAB
     Indication: B-CELL LYMPHOMA
     Dosage: 15400 MG, UNK
     Route: 042
  7. AFINITOR [Suspect]
     Active Substance: EVEROLIMUS
     Indication: BREAST CANCER METASTATIC
     Dosage: 10 MG, QD
     Route: 048
     Dates: start: 20160523, end: 20160808
  8. ZOPICLON [Concomitant]
     Active Substance: ZOPICLONE
     Indication: SLEEP DISORDER THERAPY
     Dosage: 7.5 MG, QD
     Route: 048
     Dates: start: 20171010
  9. SIMVASTATIN. [Concomitant]
     Active Substance: SIMVASTATIN
     Indication: HYPERCHOLESTEROLAEMIA
     Dosage: CUMULATIVE DOSE TO FIRST REACTION 300 MG
     Route: 048
     Dates: start: 20171010
  10. PREDNISOLONE. [Suspect]
     Active Substance: PREDNISOLONE
     Indication: B-CELL LYMPHOMA
     Route: 048
     Dates: start: 20171113
  11. VINCRISTINE [Suspect]
     Active Substance: VINCRISTINE
     Indication: B-CELL LYMPHOMA
     Dosage: 3.12 MG, QD, CUMULATIVE DOSE 3 MG
     Route: 042
     Dates: start: 20171012, end: 20171012
  12. RITUXIMAB. [Suspect]
     Active Substance: RITUXIMAB
     Dosage: CUMULATIVE DOSE TO FIRST REACTION 700 MG
     Route: 042
     Dates: start: 20171011, end: 20171011
  13. AFINITOR [Suspect]
     Active Substance: EVEROLIMUS
     Dosage: CUMULATIVE DOSE TO FIRST REACTION WAS 2260 MG
     Route: 048
     Dates: start: 20160901, end: 20170126
  14. EXEMESTANE. [Suspect]
     Active Substance: EXEMESTANE
     Indication: BREAST CANCER METASTATIC
     Dosage: CUMULATIVE DOSE TO FIRST REACTION 7250 MG
     Route: 048
     Dates: start: 20160523, end: 20170126
  15. ACETYLSALICYLSAEURE [Concomitant]
     Active Substance: ASPIRIN
  16. PREDNISOLONE. [Suspect]
     Active Substance: PREDNISOLONE
     Dosage: CUMULATIVE DOSE TO FIRST REACTION 500 MG
     Route: 048
     Dates: start: 20171012, end: 20171012
  17. PEGFILGRASTIM [Suspect]
     Active Substance: PEGFILGRASTIM
     Indication: B-CELL LYMPHOMA
     Dosage: 6 MG, QD
     Route: 058
     Dates: start: 20171015, end: 20171015
  18. DOXORUBICIN [Suspect]
     Active Substance: DOXORUBICIN
     Indication: B-CELL LYMPHOMA
     Dosage: CUMULATIVE DOSE TO FIRST REACTION 95 MG
     Route: 042
     Dates: start: 20171012, end: 20171012

REACTIONS (3)
  - Dyspnoea [Not Recovered/Not Resolved]
  - Pneumonitis [Not Recovered/Not Resolved]
  - Pneumonia [Recovered/Resolved]

NARRATIVE: CASE EVENT DATE: 20170126
